FAERS Safety Report 9256993 (Version 4)
Quarter: 2013Q4

REPORT INFORMATION
  Report Type: Spontaneous
  Country: DE (occurrence: None)
  Receive Date: 20130424
  Receipt Date: 20131001
  Transmission Date: 20140711
  Serious: Yes (Hospitalization)
  Sender: FDA-Public Use
  Company Number: 2013MPI00220

PATIENT
  Age: 16 Year
  Sex: Female
  Weight: 55.6 kg

DRUGS (2)
  1. BRENTUXIMAB VEDOTIN [Suspect]
     Indication: HODGKIN^S DISEASE
     Dosage: 1.8 MG/KG, QCYCLE, INTRAVENOUS
     Route: 042
     Dates: start: 20130305, end: 20130326
  2. BRENTUXIMAB VEDOTIN [Suspect]
     Indication: NEOPLASM RECURRENCE
     Dosage: 1.8 MG/KG, QCYCLE, INTRAVENOUS
     Route: 042
     Dates: start: 20130305, end: 20130326

REACTIONS (4)
  - Pneumonia [None]
  - Haemoglobin decreased [None]
  - Platelet count decreased [None]
  - Respiratory syncytial virus infection [None]
